FAERS Safety Report 9093612 (Version 1)
Quarter: 2013Q1

REPORT INFORMATION
  Report Type: Spontaneous
  Country: US (occurrence: US)
  Receive Date: 20130218
  Receipt Date: 20130218
  Transmission Date: 20140127
  Serious: Yes (Hospitalization)
  Sender: FDA-Public Use
  Company Number: US-BAXTER-2013BAX001208

PATIENT
  Age: 55 Year
  Sex: Male

DRUGS (2)
  1. DIANEAL LOW CALCIUM [Suspect]
     Indication: PERITONEAL DIALYSIS
     Route: 033
     Dates: start: 20110627
  2. DIANEAL LOW CALCIUM [Suspect]
     Route: 033
     Dates: start: 20110627

REACTIONS (2)
  - Adverse drug reaction [Recovered/Resolved]
  - Hypotension [Recovered/Resolved]
